FAERS Safety Report 6585457-2 (Version None)
Quarter: 2010Q1

REPORT INFORMATION
  Report Type: 
  Country: None (occurrence: None)
  Receive Date: 20100216
  Receipt Date: 20100216
  Transmission Date: 20100710
  Serious: Yes (Hospitalization)
  Sender: FDA-Public Use
  Company Number: None

PATIENT
  Sex: Female
  Weight: 57.2 kg

DRUGS (2)
  1. ONTAK [Suspect]
     Dosage: 1000 MG
  2. RITUXIMAB (MOAB C2B8 ANTI CD20, CHIMERIC) [Suspect]
     Dosage: 600 MG

REACTIONS (9)
  - ASTHENIA [None]
  - CAPILLARY LEAK SYNDROME [None]
  - CONFUSIONAL STATE [None]
  - DIARRHOEA [None]
  - HYPOTENSION [None]
  - INFUSION RELATED REACTION [None]
  - PYREXIA [None]
  - TACHYCARDIA [None]
  - VOMITING [None]
